FAERS Safety Report 4842335-4 (Version None)
Quarter: 2005Q4

REPORT INFORMATION
  Report Type: 
  Country: None (occurrence: None)
  Receive Date: 20051129
  Receipt Date: 20051012
  Transmission Date: 20060501
  Serious: Yes (Hospitalization)
  Sender: FDA-Public Use
  Company Number: 2005147148

PATIENT
  Age: 73 Year
  Sex: Male

DRUGS (6)
  1. LYRICA [Suspect]
     Indication: NEURALGIA
     Dosage: 300 MG (150 MG, 2 IN 1 D), ORAL
     Route: 048
     Dates: start: 20050420
  2. LYRICA [Suspect]
     Indication: POLYNEUROPATHY
     Dosage: 300 MG (150 MG, 2 IN 1 D), ORAL
     Route: 048
     Dates: start: 20050420
  3. AMITRIPTYLINE HCL [Concomitant]
  4. LIPITOR [Concomitant]
  5. ASCAL (ACETYLSALICYLATE CALCIUM) [Concomitant]
  6. PANTOPRAZOLE SODIUM [Concomitant]

REACTIONS (4)
  - CEREBRAL ATROPHY [None]
  - CEREBROVASCULAR ACCIDENT [None]
  - FACIAL PALSY [None]
  - TRANSIENT ISCHAEMIC ATTACK [None]
